FAERS Safety Report 24845327 (Version 1)
Quarter: 2025Q1

REPORT INFORMATION
  Report Type: Spontaneous
  Country: US (occurrence: None)
  Receive Date: 20250114
  Receipt Date: 20250114
  Transmission Date: 20250408
  Serious: No
  Sender: FDA-CTU
  Company Number: None

PATIENT
  Age: 7 Year
  Sex: Male
  Weight: 19.35 kg

DRUGS (1)
  1. XEMBIFY [Suspect]
     Active Substance: HUMAN IMMUNOGLOBULIN G
     Indication: Immune system disorder
     Route: 058

REACTIONS (6)
  - Product quality issue [None]
  - Peripheral swelling [None]
  - Erythema [None]
  - Pruritus [None]
  - Wound [None]
  - Infusion related reaction [None]

NARRATIVE: CASE EVENT DATE: 20250114
